FAERS Safety Report 22623087 (Version 77)
Quarter: 2024Q4

REPORT INFORMATION
  Report Type: Report from Study
  Country: CO (occurrence: CO)
  Receive Date: 20230621
  Receipt Date: 20241231
  Transmission Date: 20250115
  Serious: Yes (Hospitalization, Other)
  Sender: TAKEDA
  Company Number: CO-TAKEDA-2022TUS030822

PATIENT
  Age: 19 Year
  Sex: Male
  Weight: 45 kg

DRUGS (2)
  1. IDURSULFASE [Suspect]
     Active Substance: IDURSULFASE
     Indication: Mucopolysaccharidosis II
     Dosage: 23 MILLIGRAM, 1/WEEK
     Dates: start: 20211217
  2. IDURSULFASE [Suspect]
     Active Substance: IDURSULFASE
     Dosage: 24 MILLIGRAM, 1/WEEK

REACTIONS (33)
  - Inguinal hernia [Unknown]
  - Umbilical hernia [Unknown]
  - Intestinal obstruction [Unknown]
  - Product formulation issue [Unknown]
  - Product use issue [Not Recovered/Not Resolved]
  - Treatment noncompliance [Not Recovered/Not Resolved]
  - Pallor [Unknown]
  - General physical health deterioration [Unknown]
  - Malaise [Not Recovered/Not Resolved]
  - Decreased appetite [Unknown]
  - Pelvic pain [Unknown]
  - Genital pain [Unknown]
  - Movement disorder [Unknown]
  - Gait disturbance [Unknown]
  - Influenza like illness [Not Recovered/Not Resolved]
  - Weight increased [Unknown]
  - Weight decreased [Unknown]
  - Asthenia [Unknown]
  - Poor venous access [Not Recovered/Not Resolved]
  - Application site irritation [Unknown]
  - Product availability issue [Unknown]
  - Product prescribing error [Not Recovered/Not Resolved]
  - Product supply issue [Not Recovered/Not Resolved]
  - Incorrect dose administered [Not Recovered/Not Resolved]
  - Inappropriate schedule of product administration [Unknown]
  - Product dose omission issue [Unknown]
  - Application site erythema [Unknown]
  - Abdominal pain [Unknown]
  - Dizziness [Unknown]
  - Nausea [Unknown]
  - Pyrexia [Not Recovered/Not Resolved]
  - Vomiting [Unknown]
  - Headache [Unknown]

NARRATIVE: CASE EVENT DATE: 20220429
